FAERS Safety Report 7046890-8 (Version None)
Quarter: 2010Q4

REPORT INFORMATION
  Report Type: 
  Country: None (occurrence: None)
  Receive Date: 20101015
  Receipt Date: 20101008
  Transmission Date: 20110411
  Serious: Yes (Death)
  Sender: FDA-Public Use
  Company Number: PHHY2010JP67366

PATIENT
  Age: 13 Year
  Sex: Male

DRUGS (1)
  1. LOPRESSOR [Suspect]
     Route: 048

REACTIONS (1)
  - SUDDEN DEATH [None]
